FAERS Safety Report 7425034-4 (Version None)
Quarter: 2011Q2

REPORT INFORMATION
  Report Type: 
  Country: None (occurrence: None)
  Receive Date: 20110419
  Receipt Date: 20110406
  Transmission Date: 20111010
  Serious: No
  Sender: FDA-Public Use
  Company Number: US-BAYER-2011-029773

PATIENT
  Age: 67 Year
  Sex: Female
  Weight: 74.83 kg

DRUGS (2)
  1. MAGNEVIST [Suspect]
     Dosage: 15 ML, ONCE
     Route: 042
     Dates: start: 20110404, end: 20110404
  2. MAGNEVIST [Suspect]
     Indication: SCAN
     Dosage: UNK
     Dates: start: 20110303, end: 20110303

REACTIONS (2)
  - VOMITING [None]
  - NAUSEA [None]
